FAERS Safety Report 7110552-9 (Version None)
Quarter: 2010Q4

REPORT INFORMATION
  Report Type: 
  Country: None (occurrence: None)
  Receive Date: 20101118
  Receipt Date: 20101110
  Transmission Date: 20110411
  Serious: Yes (Other)
  Sender: FDA-Public Use
  Company Number: GB-GILEAD-E2B_00000930

PATIENT
  Age: 39 Year
  Sex: Male

DRUGS (2)
  1. TRUVADA [Suspect]
     Indication: HIV INFECTION
  2. NEVIRAPINE [Suspect]
     Indication: HIV INFECTION
     Dosage: 400 MG
     Dates: start: 20000101

REACTIONS (3)
  - BLOOD HIV RNA INCREASED [None]
  - DRUG RESISTANCE [None]
  - SYPHILIS [None]
